FAERS Safety Report 7542992-8 (Version None)
Quarter: 2011Q2

REPORT INFORMATION
  Report Type: 
  Country: None (occurrence: None)
  Receive Date: 20110613
  Receipt Date: 20110601
  Transmission Date: 20111010
  Serious: Yes (Other)
  Sender: FDA-Public Use
  Company Number: PHHY2011BR06845

PATIENT
  Sex: Female

DRUGS (2)
  1. DIOVAN HCT [Suspect]
     Dosage: 160 MG VALS AND 25 MG HYDR, 1 DF, DAILY
  2. DIOVAN HCT [Suspect]
     Dosage: 160 MG VALS AND 5 MG HYDR, 1 DF, DAILY

REACTIONS (2)
  - OEDEMA PERIPHERAL [None]
  - DIABETES MELLITUS [None]
